FAERS Safety Report 15122035 (Version 4)
Quarter: 2020Q2

REPORT INFORMATION
  Report Type: Spontaneous
  Country: US (occurrence: US)
  Receive Date: 20180709
  Receipt Date: 20200630
  Transmission Date: 20200713
  Serious: Yes (Hospitalization, Other)
  Sender: FDA-Public Use
  Company Number: US-IMPAX LABORATORIES, INC-2018-IPXL-00069

PATIENT
  Age: 68 Year
  Sex: Female
  Weight: 68 kg

DRUGS (7)
  1. RYTARY [Suspect]
     Active Substance: CARBIDOPA\LEVODOPA
     Indication: PARKINSON^S DISEASE
     Dosage: 2 CAPSULES, EVERY TWO TO THREE HOURS
     Route: 048
     Dates: start: 2016
  2. RYTARY [Suspect]
     Active Substance: CARBIDOPA\LEVODOPA
     Dosage: 2 CAPSULES, 8/DAY (EVERY THREE HOURS)
     Route: 048
  3. RYTARY [Suspect]
     Active Substance: CARBIDOPA\LEVODOPA
     Dosage: 2 AND 3 CAPSULES ALTERNATIVELY AFTER EVERY 3HRS
     Route: 048
  4. RYTARY [Suspect]
     Active Substance: CARBIDOPA\LEVODOPA
     Dosage: 2 CAPSULES EVERY 3HRS
     Route: 048
  5. AZATHIOPRINE. [Concomitant]
     Active Substance: AZATHIOPRINE
     Indication: LUPUS MYOSITIS
     Dosage: UNK
     Route: 065
  6. MIRAPEX [Concomitant]
     Active Substance: PRAMIPEXOLE DIHYDROCHLORIDE
     Indication: PARKINSON^S DISEASE
     Dosage: UNK
     Route: 065
  7. AMLODIPINE [Concomitant]
     Active Substance: AMLODIPINE BESYLATE
     Indication: HYPERTENSION
     Dosage: UNK
     Route: 065

REACTIONS (7)
  - Bronchitis [Unknown]
  - Malaise [Recovered/Resolved]
  - Gait disturbance [Unknown]
  - Product dose omission [Unknown]
  - Diarrhoea [Unknown]
  - Expired product administered [Unknown]
  - Arthritis [Unknown]

NARRATIVE: CASE EVENT DATE: 201801
